FAERS Safety Report 11957531 (Version 1)
Quarter: 2016Q1

REPORT INFORMATION
  Report Type: Spontaneous
  Country: US (occurrence: US)
  Receive Date: 20160126
  Receipt Date: 20160126
  Transmission Date: 20160526
  Serious: Yes (Other)
  Sender: FDA-Public Use
  Company Number: US-BAXTER-2016BAX003501

PATIENT
  Age: 2 Year
  Sex: Female
  Weight: 11 kg

DRUGS (10)
  1. 0.9% SODIUM CHLORIDE INJECTION [Suspect]
     Active Substance: SODIUM CHLORIDE
     Indication: DEVICE PRIMING
     Route: 010
     Dates: start: 20160116
  2. 0.9% SODIUM CHLORIDE INJECTION [Suspect]
     Active Substance: SODIUM CHLORIDE
     Indication: RENAL REPLACEMENT THERAPY
  3. ALBUMIN [Suspect]
     Active Substance: ALBUMIN (HUMAN)
     Indication: DEVICE PRIMING
     Route: 010
     Dates: start: 20160116
  4. HEPARIN [Suspect]
     Active Substance: HEPARIN SODIUM
     Indication: ANTICOAGULANT THERAPY
     Route: 042
     Dates: start: 20160116
  5. 0.9% SODIUM CHLORIDE INJECTION [Suspect]
     Active Substance: SODIUM CHLORIDE
     Indication: ACUTE KIDNEY INJURY
  6. CITRATE [Suspect]
     Active Substance: CITRIC ACID MONOHYDRATE
     Indication: ANTICOAGULANT THERAPY
     Route: 010
     Dates: start: 20160116
  7. 0.9% SODIUM CHLORIDE INJECTION [Suspect]
     Active Substance: SODIUM CHLORIDE
     Indication: HAEMOLYTIC URAEMIC SYNDROME
  8. ALBUMIN [Suspect]
     Active Substance: ALBUMIN (HUMAN)
     Indication: RENAL REPLACEMENT THERAPY
  9. ALBUMIN [Suspect]
     Active Substance: ALBUMIN (HUMAN)
     Indication: ACUTE KIDNEY INJURY
  10. ALBUMIN [Suspect]
     Active Substance: ALBUMIN (HUMAN)
     Indication: HAEMOLYTIC URAEMIC SYNDROME

REACTIONS (1)
  - Haemorrhage [Unknown]

NARRATIVE: CASE EVENT DATE: 201601
